FAERS Safety Report 7828137-5 (Version None)
Quarter: 2011Q4

REPORT INFORMATION
  Report Type: 
  Country: None (occurrence: None)
  Receive Date: 20111018
  Receipt Date: 20111005
  Transmission Date: 20120403
  Serious: Yes (Other)
  Sender: FDA-Public Use
  Company Number: EU-2011-10161

PATIENT
  Age: 70 Year
  Sex: Male
  Weight: 79 kg

DRUGS (4)
  1. PLETAL [Suspect]
     Indication: PERIPHERAL ARTERIAL OCCLUSIVE DISEASE
     Dosage: 100 MG MILLIGRAM(S), BID, ORAL ; 100 MG MILLIGRAM(S), ORAL
     Route: 048
     Dates: start: 20110812, end: 20110825
  2. PLETAL [Suspect]
     Indication: PERIPHERAL ARTERIAL OCCLUSIVE DISEASE
     Dosage: 100 MG MILLIGRAM(S), BID, ORAL ; 100 MG MILLIGRAM(S), ORAL
     Route: 048
     Dates: start: 20110826
  3. SIMVASTATIN [Concomitant]
  4. ASPIRIN [Concomitant]

REACTIONS (3)
  - TACHYCARDIA [None]
  - HYPERHIDROSIS [None]
  - DIARRHOEA [None]
